FAERS Safety Report 24451384 (Version 1)
Quarter: 2024Q4

REPORT INFORMATION
  Report Type: Spontaneous
  Country: PR (occurrence: PR)
  Receive Date: 20241017
  Receipt Date: 20241017
  Transmission Date: 20250115
  Serious: No
  Sender: FENNEC PHARMACEUTICALS
  Company Number: PR-FENNEC PHARMACEUTICALS, INC.-2024FEN00039

PATIENT

DRUGS (1)
  1. PEDMARK [Suspect]
     Active Substance: SODIUM THIOSULFATE
     Dosage: UNK

REACTIONS (1)
  - Chills [Unknown]

NARRATIVE: CASE EVENT DATE: 20240822
